FAERS Safety Report 17209952 (Version 1)
Quarter: 2019Q4

REPORT INFORMATION
  Report Type: Spontaneous
  Country: DE (occurrence: DE)
  Receive Date: 20191227
  Receipt Date: 20191227
  Transmission Date: 20200122
  Serious: Yes (Other)
  Sender: FDA-Public Use
  Company Number: DE-MYLANLABS-2019M1127688

PATIENT
  Age: 57 Year
  Sex: Male
  Weight: 55 kg

DRUGS (6)
  1. BISOPROLOL 1A PHARMA [Suspect]
     Active Substance: BISOPROLOL
     Dosage: 1.25 MILLIGRAM, QD
     Route: 065
     Dates: start: 201904
  2. BISOPROLOL 1A PHARMA [Suspect]
     Active Substance: BISOPROLOL
     Dosage: 1.25 MG, BID (1-0-1)
     Route: 065
     Dates: start: 20190408
  3. BISOPROLOL 1A PHARMA [Suspect]
     Active Substance: BISOPROLOL
     Dosage: 2.5 MG, BID
     Dates: start: 201903
  4. AZATHIOPRINE. [Suspect]
     Active Substance: AZATHIOPRINE
     Indication: PRODUCT USED FOR UNKNOWN INDICATION
     Dosage: UNK
     Route: 065
  5. LIXIANA [Suspect]
     Active Substance: EDOXABAN TOSYLATE
     Indication: ATRIAL FIBRILLATION
     Dosage: 60 MG, QD
     Route: 048
     Dates: start: 201903, end: 201905
  6. BISOPROLOL 1A PHARMA [Suspect]
     Active Substance: BISOPROLOL
     Indication: ATRIAL FIBRILLATION
     Dosage: 2.5 MG, BID
     Route: 065
     Dates: start: 201711

REACTIONS (8)
  - Heart rate increased [Recovered/Resolved]
  - Kidney congestion [Unknown]
  - Sepsis [Unknown]
  - Hypotension [Recovered/Resolved]
  - Inappropriate schedule of product administration [Unknown]
  - Liver function test abnormal [Recovering/Resolving]
  - Hypertension [Recovered/Resolved]
  - Incorrect dose administered [Recovered/Resolved]

NARRATIVE: CASE EVENT DATE: 2019
